FAERS Safety Report 10168144 (Version 3)
Quarter: 2014Q2

REPORT INFORMATION
  Report Type: Spontaneous
  Country: JP (occurrence: JP)
  Receive Date: 20140512
  Receipt Date: 20140516
  Transmission Date: 20141212
  Serious: Yes (Hospitalization)
  Sender: FDA-Public Use
  Company Number: JP-009507513-1404JPN011993

PATIENT
  Age: 76 Year
  Sex: Male

DRUGS (3)
  1. JANUVIA TABLETS 50MG [Suspect]
     Indication: DIABETES MELLITUS
     Dosage: 50 MG, 1/1 DAY
     Route: 048
     Dates: end: 20140310
  2. GLIMEPIRIDE [Suspect]
     Indication: DIABETES MELLITUS
     Dosage: 1 MG, 2/1 DAY
     Route: 048
     Dates: end: 20140310
  3. AMLODIPINE [Suspect]
     Indication: HYPERTENSION
     Dosage: 5 MG, 1/1 DAY
     Route: 048
     Dates: end: 20140310

REACTIONS (1)
  - Pyrexia [Recovered/Resolved]
